FAERS Safety Report 9791695 (Version 8)
Quarter: 2014Q3

REPORT INFORMATION
  Report Type: Spontaneous
  Country: JP (occurrence: JP)
  Receive Date: 20140102
  Receipt Date: 20140801
  Transmission Date: 20150326
  Serious: Yes (Hospitalization)
  Sender: FDA-Public Use
  Company Number: JP-BEH-2013039718

PATIENT
  Sex: Male

DRUGS (16)
  1. ALBUMINAR [Suspect]
     Active Substance: ALBUMIN (HUMAN)
     Dates: start: 20131224, end: 20131224
  2. ALBUMINAR [Suspect]
     Active Substance: ALBUMIN (HUMAN)
     Dosage: 12.5 G/250 ML
     Route: 041
     Dates: start: 20131212, end: 20131212
  3. BROTIZOLAM [Concomitant]
     Active Substance: BROTIZOLAM
     Indication: INSOMNIA
     Route: 048
  4. ALBUMINAR [Suspect]
     Active Substance: ALBUMIN (HUMAN)
     Dates: start: 20131212, end: 20131212
  5. PREDNISOLONE. [Concomitant]
     Active Substance: PREDNISOLONE
     Indication: NEUROMYELITIS OPTICA
     Route: 048
     Dates: start: 20130809
  6. LANSOPRAZOLE. [Concomitant]
     Active Substance: LANSOPRAZOLE
     Indication: GASTRITIS
     Route: 048
  7. ALBUMINAR [Suspect]
     Active Substance: ALBUMIN (HUMAN)
     Dosage: 12.5 G/250 ML
     Route: 041
     Dates: start: 20131219, end: 20131219
  8. ALBUMINAR [Suspect]
     Active Substance: ALBUMIN (HUMAN)
     Dosage: 12.5 G/250 ML
     Route: 041
     Dates: start: 20131224, end: 20131224
  9. ALBUMINAR [Suspect]
     Active Substance: ALBUMIN (HUMAN)
     Dates: start: 20131212, end: 20131212
  10. ALBUMINAR [Suspect]
     Active Substance: ALBUMIN (HUMAN)
     Dates: start: 20131212, end: 20131212
  11. SENNOSIDE [Concomitant]
     Active Substance: SENNOSIDES
     Indication: CONSTIPATION
     Route: 048
  12. ALBUMINAR [Suspect]
     Active Substance: ALBUMIN (HUMAN)
     Indication: PLASMAPHERESIS
     Dates: start: 20131212, end: 20131212
  13. ALBUMINAR [Suspect]
     Active Substance: ALBUMIN (HUMAN)
     Dates: start: 20131224, end: 20131224
  14. ALBUMINAR [Suspect]
     Active Substance: ALBUMIN (HUMAN)
     Dosage: 12.5 G/250 ML
     Route: 041
     Dates: start: 20131217, end: 20131217
  15. ALBUMINAR [Suspect]
     Active Substance: ALBUMIN (HUMAN)
     Dates: start: 20131212, end: 20131212
  16. ALBUMINAR [Suspect]
     Active Substance: ALBUMIN (HUMAN)
     Dates: start: 20131224, end: 20131224

REACTIONS (4)
  - Productive cough [Unknown]
  - Pleural effusion [Unknown]
  - Pulmonary oedema [Recovered/Resolved]
  - Respiratory disorder [Unknown]

NARRATIVE: CASE EVENT DATE: 20131224
